FAERS Safety Report 20783646 (Version 2)
Quarter: 2022Q2

REPORT INFORMATION
  Report Type: Spontaneous
  Country: US (occurrence: US)
  Receive Date: 20220504
  Receipt Date: 20220627
  Transmission Date: 20220721
  Serious: No
  Sender: FDA-Public Use
  Company Number: US-SA-SAC20220502000884

PATIENT
  Age: 73 Year
  Sex: Female

DRUGS (1)
  1. KEVZARA [Suspect]
     Active Substance: SARILUMAB
     Indication: Rheumatoid arthritis
     Dosage: 200 MG, QOW
     Route: 058
     Dates: start: 20220323

REACTIONS (3)
  - Headache [Recovering/Resolving]
  - Blood glucose abnormal [Unknown]
  - Urinary tract infection [Not Recovered/Not Resolved]
